FAERS Safety Report 8578640-8 (Version None)
Quarter: 2012Q3

REPORT INFORMATION
  Report Type: 
  Country: None (occurrence: None)
  Receive Date: 20120808
  Receipt Date: 20120730
  Transmission Date: 20120928
  Serious: Yes (Other)
  Sender: FDA-Public Use
  Company Number: JP-VERTEX PHARMACEUTICALS INC.-AE-2012-011390

PATIENT
  Age: 62 Year
  Sex: Male

DRUGS (11)
  1. RIBAVIRIN [Concomitant]
     Route: 048
     Dates: start: 20120209
  2. PEGINTERFERON ALFA-2B [Concomitant]
     Indication: HEPATITIS C
     Route: 058
     Dates: start: 20120124, end: 20120201
  3. PEGINTERFERON ALFA-2B [Concomitant]
     Route: 058
     Dates: start: 20120222, end: 20120320
  4. BASEN OD [Concomitant]
     Route: 048
  5. ADALAT [Concomitant]
     Route: 048
  6. OMEPRAZOLE [Concomitant]
     Route: 048
     Dates: start: 20120203, end: 20120530
  7. RIBAVIRIN [Concomitant]
     Indication: HEPATITIS C
     Route: 048
     Dates: start: 20120124, end: 20120208
  8. TELAVIC [Suspect]
     Indication: HEPATITIS C
     Route: 048
     Dates: start: 20120124
  9. ZETIA [Concomitant]
     Route: 048
     Dates: start: 20120404
  10. TELAVIC [Suspect]
     Route: 048
     Dates: start: 20120222, end: 20120418
  11. PEGINTERFERON ALFA-2B [Concomitant]
     Route: 058
     Dates: start: 20120321

REACTIONS (1)
  - RETINOPATHY [None]
